FAERS Safety Report 4343088-9 (Version None)
Quarter: 2004Q2

REPORT INFORMATION
  Report Type: 
  Country: None (occurrence: None)
  Receive Date: 20040419
  Receipt Date: 20040401
  Transmission Date: 20050107
  Serious: Yes (Disabling)
  Sender: FDA-Public Use
  Company Number: 2002-FF-00623FF

PATIENT
  Age: 52 Year
  Sex: Male

DRUGS (6)
  1. VIRAMUNE [Suspect]
     Indication: HIV INFECTION
     Dosage: 400 MG (200 MG) PO
     Route: 048
     Dates: start: 19990814, end: 19990925
  2. VIDEX [Concomitant]
  3. EPIVIR [Concomitant]
  4. VIRACEPT [Concomitant]
  5. ZERIT [Concomitant]
  6. ZIAGEN [Concomitant]

REACTIONS (2)
  - BONE LESION [None]
  - OSTEONECROSIS [None]
